FAERS Safety Report 19563856 (Version 1)
Quarter: 2021Q3

REPORT INFORMATION
  Report Type: Spontaneous
  Country: PL (occurrence: PL)
  Receive Date: 20210714
  Receipt Date: 20210714
  Transmission Date: 20211014
  Serious: Yes (Hospitalization, Other)
  Sender: FDA-Public Use
  Company Number: PL-PFIZER INC-2021803646

PATIENT
  Age: 82 Year
  Sex: Female
  Weight: 96 kg

DRUGS (1)
  1. DALACIN C [Suspect]
     Active Substance: CLINDAMYCIN
     Indication: TOOTH EXTRACTION
     Dosage: 900 MG
     Route: 048
     Dates: start: 20180918, end: 20180925

REACTIONS (2)
  - Hypersensitivity vasculitis [Recovering/Resolving]
  - Rash papular [Recovering/Resolving]

NARRATIVE: CASE EVENT DATE: 20180925
